FAERS Safety Report 9251361 (Version 2)
Quarter: 2013Q2

REPORT INFORMATION
  Report Type: Spontaneous
  Country: US (occurrence: US)
  Receive Date: 20130424
  Receipt Date: 20130430
  Transmission Date: 20140414
  Serious: Yes (Other)
  Sender: FDA-Public Use
  Company Number: US-PFIZER INC-2013122727

PATIENT
  Age: 71 Year
  Sex: Female

DRUGS (7)
  1. LEVOTHYROXINE SODIUM [Suspect]
     Dosage: 0.5 MG, UNK
  2. LEVOTHYROXINE SODIUM [Suspect]
     Dosage: 0.75 MG, UNK
  3. LEVOTHYROXINE SODIUM [Suspect]
     Dosage: 0.88 MG, UNK
  4. LEVOTHYROXINE SODIUM [Suspect]
     Dosage: 1 MG, UNK
  5. LEVOTHYROXINE SODIUM [Suspect]
     Dosage: 0.75 MG, UNK
  6. LEVOXYL [Suspect]
     Indication: THYROID DISORDER
     Dosage: 88 UG, UNK
     Dates: end: 201210
  7. LEVOTHYROXINE SODIUM [Suspect]
     Indication: THYROID DISORDER
     Dosage: 0.25 MG, UNK
     Dates: start: 201210

REACTIONS (9)
  - Thyrotoxic crisis [Unknown]
  - Hyperthyroidism [Unknown]
  - Hypothyroidism [Unknown]
  - Pharyngeal oedema [Unknown]
  - Oropharyngeal pain [Unknown]
  - Bedridden [Unknown]
  - Malaise [Unknown]
  - Cough [Unknown]
  - Pain [Unknown]
